FAERS Safety Report 5214122-9 (Version None)
Quarter: 2007Q1

REPORT INFORMATION
  Report Type: 
  Country: None (occurrence: None)
  Receive Date: 20070122
  Receipt Date: 20070112
  Transmission Date: 20070707
  Serious: Yes (Other)
  Sender: FDA-Public Use
  Company Number: 2007UW00748

PATIENT
  Age: 60 Year
  Sex: Female

DRUGS (7)
  1. SEROQUEL [Suspect]
     Route: 048
     Dates: start: 20070112, end: 20070112
  2. CLONIDINE [Concomitant]
  3. LEXAPRO [Concomitant]
  4. WELLBUTRIN [Concomitant]
  5. CELEBREX [Concomitant]
  6. SYNTHROID [Concomitant]
  7. NEXIUM [Concomitant]
     Route: 048

REACTIONS (3)
  - HEART RATE DECREASED [None]
  - LOSS OF CONSCIOUSNESS [None]
  - MEDICATION ERROR [None]
